FAERS Safety Report 5069836-0 (Version None)
Quarter: 2006Q3

REPORT INFORMATION
  Report Type: 
  Country: None (occurrence: None)
  Receive Date: 20060731
  Receipt Date: 20060724
  Transmission Date: 20061208
  Serious: Yes (Hospitalization, Other)
  Sender: FDA-Public Use
  Company Number: 2006-07-1487

PATIENT
  Age: 60 Year
  Sex: Male
  Weight: 56 kg

DRUGS (8)
  1. PEG-INTRON [Suspect]
     Indication: HEPATITIS C
     Dosage: 90 MCG QWK SUBCUTANEOUS
     Route: 058
     Dates: start: 20060526
  2. RIBAVIRIN [Suspect]
     Indication: HEPATITIS C
     Dosage: 800-600 MG* ORAL - SEE IMAGE
     Route: 048
     Dates: start: 20060526, end: 20060601
  3. RIBAVIRIN [Suspect]
     Indication: HEPATITIS C
     Dosage: 800-600 MG* ORAL - SEE IMAGE
     Route: 048
     Dates: start: 20060526
  4. RIBAVIRIN [Suspect]
     Indication: HEPATITIS C
     Dosage: 800-600 MG* ORAL - SEE IMAGE
     Route: 048
     Dates: start: 20060601
  5. TIMOLOL MALEATE [Concomitant]
  6. ALDACTONE [Concomitant]
  7. MULTI-VITAMINS [Concomitant]
  8. LAXATIVES (NOS) [Concomitant]

REACTIONS (7)
  - COUGH [None]
  - HAEMOGLOBIN DECREASED [None]
  - PAIN [None]
  - PARATRACHEAL LYMPHADENOPATHY [None]
  - PRODUCTIVE COUGH [None]
  - PYREXIA [None]
  - TUBERCULOSIS [None]
